FAERS Safety Report 9239495 (Version 2)
Quarter: 2013Q2

REPORT INFORMATION
  Report Type: Spontaneous
  Country: FR (occurrence: FR)
  Receive Date: 20130418
  Receipt Date: 20130501
  Transmission Date: 20140414
  Serious: Yes (Hospitalization, Other)
  Sender: FDA-Public Use
  Company Number: FR-ASTRAZENECA-2013SE24825

PATIENT
  Age: 11605 Day
  Sex: Male

DRUGS (5)
  1. CARBOCAINE [Suspect]
     Indication: LOCAL ANAESTHESIA
     Route: 053
     Dates: start: 20130316, end: 20130316
  2. CEFTRIAXONE [Concomitant]
     Indication: ANTIBIOTIC THERAPY
     Route: 042
     Dates: start: 20130315, end: 20130317
  3. METRONIDAZOLE [Concomitant]
     Indication: ANTIBIOTIC THERAPY
     Route: 042
     Dates: start: 20130316, end: 20130317
  4. AMOXICILLINE/ ACIDE CLAVULANIQUE [Concomitant]
     Indication: ESCHERICHIA BACTERAEMIA
     Route: 042
     Dates: start: 20130315, end: 20130317
  5. AMOXICILLINE [Concomitant]
     Route: 042
     Dates: start: 20130318, end: 20130326

REACTIONS (9)
  - Negative cardiac inotropic effect [Recovered/Resolved]
  - Depressed level of consciousness [Recovered/Resolved]
  - Toxicity to various agents [Recovered/Resolved]
  - Metabolic acidosis [Unknown]
  - Grand mal convulsion [Recovered/Resolved]
  - Lung disorder [Unknown]
  - Oesophageal candidiasis [Unknown]
  - Pyrexia [Unknown]
  - Feeding tube complication [Unknown]
